FAERS Safety Report 8179102-2 (Version None)
Quarter: 2012Q1

REPORT INFORMATION
  Report Type: 
  Country: None (occurrence: None)
  Receive Date: 20120227
  Receipt Date: 20120210
  Transmission Date: 20120608
  Serious: Yes (Other)
  Sender: FDA-Public Use
  Company Number: 1000028302

PATIENT
  Age: 55 Year
  Sex: Female

DRUGS (3)
  1. CITALOPRAM HYDROBROMIDE [Suspect]
     Indication: NEUROSIS
     Dosage: ORAL
     Route: 048
  2. QUETIAPINE (QUETIAPINE) (QUETIAPINE) [Concomitant]
  3. XANAX [Concomitant]

REACTIONS (5)
  - CYSTOID MACULAR OEDEMA [None]
  - PARAESTHESIA ORAL [None]
  - OEDEMA PERIPHERAL [None]
  - HYALOSIS ASTEROID [None]
  - FATIGUE [None]
